FAERS Safety Report 8354064 (Version 3)
Quarter: 2013Q3

REPORT INFORMATION
  Report Type: Spontaneous
  Country: US (occurrence: US)
  Receive Date: 20120125
  Receipt Date: 20130812
  Transmission Date: 20140515
  Serious: Yes (Other)
  Sender: FDA-Public Use
  Company Number: US-ROCHE-1032811

PATIENT
  Sex: Female
  Weight: 54.48 kg

DRUGS (1)
  1. ACCUTANE [Suspect]
     Indication: ACNE CYSTIC
     Route: 065
     Dates: start: 1996, end: 1997

REACTIONS (7)
  - Crohn^s disease [Unknown]
  - Colitis [Unknown]
  - Diverticulitis [Unknown]
  - Depression [Not Recovered/Not Resolved]
  - Injury [Unknown]
  - Inflammatory bowel disease [Unknown]
  - Intestinal haemorrhage [Unknown]
